FAERS Safety Report 5880496-9 (Version None)
Quarter: 2008Q3

REPORT INFORMATION
  Report Type: 
  Country: None (occurrence: None)
  Receive Date: 20080912
  Receipt Date: 20080602
  Transmission Date: 20090109
  Serious: No
  Sender: FDA-Public Use
  Company Number: US-ABBOTT-08P-163-0454324-00

PATIENT
  Sex: Female

DRUGS (6)
  1. HUMIRA [Suspect]
     Indication: RHEUMATOID ARTHRITIS
     Route: 058
  2. CETIRIZINE HYDROCHLORIDE [Concomitant]
     Indication: RESPIRATORY TRACT CONGESTION
  3. PREDNISONE TAB [Concomitant]
     Indication: RHEUMATOID ARTHRITIS
  4. METHOTREXATE [Concomitant]
     Indication: RHEUMATOID ARTHRITIS
  5. TEMAZEPAN [Concomitant]
     Indication: INSOMNIA
  6. ERGOCALCIFEROL [Concomitant]
     Indication: RHEUMATOID ARTHRITIS

REACTIONS (1)
  - RESPIRATORY TRACT CONGESTION [None]
